FAERS Safety Report 9781009 (Version 1)
Quarter: 2013Q4

REPORT INFORMATION
  Report Type: Spontaneous
  Country: US (occurrence: US)
  Receive Date: 20131224
  Receipt Date: 20131224
  Transmission Date: 20140711
  Serious: Yes (Other)
  Sender: FDA-Public Use
  Company Number: US-NOVOPROD-395771

PATIENT
  Age: 59 Year
  Sex: Male
  Weight: 116.1 kg

DRUGS (6)
  1. VICTOZA [Suspect]
     Indication: TYPE 2 DIABETES MELLITUS
     Dosage: UNK
     Route: 058
     Dates: start: 2013
  2. VICTOZA [Suspect]
     Dosage: 1.8 MG, QD
     Route: 058
     Dates: end: 20131215
  3. VICTOZA [Suspect]
     Dosage: 0.6 MG, QD
     Route: 058
     Dates: start: 20131216
  4. LATUDA [Suspect]
     Indication: BIPOLAR I DISORDER
     Dosage: UNKNOWN
     Route: 048
     Dates: start: 201311
  5. ANTIHYPERTENSIVES [Concomitant]
     Indication: HYPERTENSION
  6. ANTIPSYCHOTICS [Concomitant]
     Indication: BIPOLAR I DISORDER

REACTIONS (5)
  - Drug interaction [Not Recovered/Not Resolved]
  - Vomiting [Recovered/Resolved]
  - Dysphagia [Not Recovered/Not Resolved]
  - Gastroenteritis viral [Unknown]
  - Abdominal pain upper [Not Recovered/Not Resolved]
